FAERS Safety Report 19456519 (Version 4)
Quarter: 2021Q3

REPORT INFORMATION
  Report Type: Report from Study
  Country: None (occurrence: US)
  Receive Date: 20210624
  Receipt Date: 20210817
  Transmission Date: 20211014
  Serious: Yes (Hospitalization)
  Sender: FDA-Public Use
  Company Number: CA-ABBVIE-21K-028-3906684-00

PATIENT
  Sex: Male

DRUGS (1)
  1. HUMIRA [Suspect]
     Active Substance: ADALIMUMAB
     Indication: HIDRADENITIS
     Route: 058
     Dates: start: 20200115, end: 20210506

REACTIONS (6)
  - Fatigue [Unknown]
  - Drug ineffective [Unknown]
  - Stress [Not Recovered/Not Resolved]
  - Mental disorder [Not Recovered/Not Resolved]
  - Thinking abnormal [Unknown]
  - Anxiety [Unknown]

NARRATIVE: CASE EVENT DATE: 2021
